FAERS Safety Report 6237166-7 (Version None)
Quarter: 2009Q2

REPORT INFORMATION
  Report Type: 
  Country: None (occurrence: None)
  Receive Date: 20090619
  Receipt Date: 20090508
  Transmission Date: 20091009
  Serious: Yes (Hospitalization)
  Sender: FDA-Public Use
  Company Number: US-ASTRAZENECA-2009UW11814

PATIENT
  Age: 61 Year
  Sex: Female
  Weight: 68 kg

DRUGS (5)
  1. SYMBICORT [Suspect]
     Indication: ASTHMA
     Dosage: 320 MCG
     Route: 055
  2. ACCOLATE [Concomitant]
  3. ZANTAC [Concomitant]
  4. VENTOLIN [Concomitant]
     Route: 055
  5. ALBUTEROL [Concomitant]
     Route: 055

REACTIONS (1)
  - ASTHMA [None]
